FAERS Safety Report 8792148 (Version 1)
Quarter: 2012Q4

REPORT INFORMATION
  Report Type: 
  Country: None (occurrence: None)
  Receive Date: 20120918
  Receipt Date: 20120918
  Transmission Date: 20130627
  Serious: Yes (Other)
  Sender: FDA-Public Use
  Company Number: RS-ROCHE-1113458

PATIENT

DRUGS (5)
  1. HERCEPTIN [Suspect]
     Indication: BREAST CANCER METASTATIC
     Route: 065
  2. FLUOROURACIL [Concomitant]
  3. DOXORUBICIN [Concomitant]
  4. CYCLOPHOSPHAMIDE [Concomitant]
  5. NOLVADEX [Concomitant]

REACTIONS (2)
  - Mastitis [Unknown]
  - Metastasis [Unknown]
